FAERS Safety Report 11777785 (Version 2)
Quarter: 2015Q4

REPORT INFORMATION
  Report Type: Spontaneous
  Country: RU (occurrence: RU)
  Receive Date: 20151125
  Receipt Date: 20151204
  Transmission Date: 20160304
  Serious: Yes (Other)
  Sender: FDA-Public Use
  Company Number: RU-BAYER-2015-468718

PATIENT
  Age: 34 Year
  Sex: Female

DRUGS (2)
  1. YARINA [Suspect]
     Active Substance: DROSPIRENONE\ETHINYL ESTRADIOL
     Indication: UTERINE LEIOMYOMA
     Dosage: UNK
  2. QLAIRA [Suspect]
     Active Substance: DIENOGEST\ESTRADIOL VALERATE

REACTIONS (14)
  - Dyspnoea [None]
  - Speech disorder [None]
  - Headache [None]
  - Vomiting [None]
  - Nausea [None]
  - Photophobia [None]
  - Off label use [None]
  - Hypoaesthesia oral [None]
  - Bradycardia [Not Recovered/Not Resolved]
  - Cough [None]
  - Drug dose omission [None]
  - Hypoaesthesia [None]
  - Head discomfort [None]
  - Blood pressure increased [None]
